FAERS Safety Report 7221268-2 (Version None)
Quarter: 2011Q1

REPORT INFORMATION
  Report Type: 
  Country: None (occurrence: None)
  Receive Date: 20110112
  Receipt Date: 20110103
  Transmission Date: 20110831
  Serious: Yes (Other)
  Sender: FDA-Public Use
  Company Number: PHHY2009CA49055

PATIENT
  Sex: Female

DRUGS (3)
  1. ASPIRIN [Concomitant]
     Dosage: UNK
  2. TYLENOL-500 [Concomitant]
     Dosage: UNK
  3. ACLASTA [Suspect]
     Indication: OSTEOPOROSIS
     Dosage: 5 MG
     Route: 042
     Dates: start: 20091103, end: 20091103

REACTIONS (9)
  - PYREXIA [None]
  - DYSPHONIA [None]
  - DIARRHOEA [None]
  - DYSPNOEA [None]
  - UPPER LIMB FRACTURE [None]
  - LISTERIOSIS [None]
  - COUGH [None]
  - FALL [None]
  - MALAISE [None]
